FAERS Safety Report 4443922-8 (Version None)
Quarter: 2004Q3

REPORT INFORMATION
  Report Type: 
  Country: None (occurrence: None)
  Receive Date: 20040908
  Receipt Date: 20040827
  Transmission Date: 20050211
  Serious: Yes (Other)
  Sender: FDA-Public Use
  Company Number: TH-BRISTOL-MYERS SQUIBB COMPANY-12695078

PATIENT
  Age: 33 Year
  Sex: Female

DRUGS (3)
  1. EFAVIRENZ CAPS [Suspect]
     Indication: ACQUIRED IMMUNODEFICIENCY SYNDROME
     Route: 048
  2. STAVUDINE [Concomitant]
  3. LAMIVUDINE [Concomitant]

REACTIONS (1)
  - ENCEPHALITIS CYTOMEGALOVIRUS [None]
